FAERS Safety Report 5446252-0 (Version None)
Quarter: 2007Q3

REPORT INFORMATION
  Report Type: 
  Country: None (occurrence: None)
  Receive Date: 20070907
  Receipt Date: 20070827
  Transmission Date: 20080115
  Serious: Yes (Hospitalization)
  Sender: FDA-Public Use
  Company Number: CA-ELI_LILLY_AND_COMPANY-CA200705006089

PATIENT
  Age: 84 Year
  Sex: Female

DRUGS (8)
  1. FORTEO [Suspect]
     Indication: OSTEOPOROSIS
     Dosage: 20 UG, DAILY (1/D)
     Route: 058
     Dates: start: 20060902, end: 20070101
  2. MORPHINE [Concomitant]
  3. COUMADIN [Concomitant]
  4. TYLENOL EXTRA-STRENGTH [Concomitant]
  5. METHOTREXATE [Concomitant]
  6. IRON [Concomitant]
  7. CALCIUM [Concomitant]
  8. VITAMIN D [Concomitant]

REACTIONS (2)
  - CHOLELITHIASIS [None]
  - URINARY RETENTION [None]
